FAERS Safety Report 9571529 (Version 2)
Quarter: 2013Q4

REPORT INFORMATION
  Report Type: Report from Study
  Country: US (occurrence: US)
  Receive Date: 20131001
  Receipt Date: 20131218
  Transmission Date: 20140711
  Serious: Yes (Hospitalization)
  Sender: FDA-Public Use
  Company Number: US-BAYER-2013-116777

PATIENT
  Age: 67 Year
  Sex: Male

DRUGS (2)
  1. STIVARGA [Suspect]
     Indication: NEOPLASM MALIGNANT
     Dosage: 160 MG, QD
     Route: 048
     Dates: start: 201308, end: 20130909
  2. STIVARGA [Suspect]
     Indication: NEOPLASM MALIGNANT
     Dosage: 80 MG, QD (2 PILLS PER DAY)
     Route: 048
     Dates: start: 20130909, end: 201311

REACTIONS (4)
  - Diarrhoea [None]
  - Dehydration [None]
  - Diarrhoea [None]
  - Dehydration [None]
